FAERS Safety Report 19178413 (Version 1)
Quarter: 2021Q2

REPORT INFORMATION
  Report Type: Spontaneous
  Country: US (occurrence: US)
  Receive Date: 20210426
  Receipt Date: 20210426
  Transmission Date: 20210717
  Serious: Yes (Hospitalization)
  Sender: FDA-Public Use
  Company Number: US-TEVA-2021-US-1904638

PATIENT
  Age: 7 Month
  Sex: Female

DRUGS (9)
  1. DAUNORUBICIN [Suspect]
     Active Substance: DAUNORUBICIN
     Dosage: 50MG/M2 ON DAY 1, DAY 3 AND DAY 5
     Route: 065
  2. CYTARABINE. [Suspect]
     Active Substance: CYTARABINE
     Indication: ACUTE LEUKAEMIA
     Dosage: 200 MG/M2 DAILY; DAY 1 TO DAY 10
     Route: 065
  3. DAUNORUBICIN [Suspect]
     Active Substance: DAUNORUBICIN
     Indication: ACUTE LEUKAEMIA
     Dosage: AS A PART OF INTERFANT?06 PROTOCOL; DAUNORUBICIN 30 MG/M2/DOSE FOR 1 HOUR
     Route: 042
  4. ARA?C [Suspect]
     Active Substance: CYTARABINE
     Indication: ACUTE LEUKAEMIA
     Dosage: AS A PART OF INTERFANT?06 PROTOCOL; 75 MG/M2/DOSE FOR 30 MINUTES
     Route: 042
  5. PREDNISONE. [Suspect]
     Active Substance: PREDNISONE
     Indication: ACUTE LEUKAEMIA
     Dosage: 60 MG/M2 DAILY; AS A PART OF INTERFANT?06 PROTOCOL
     Route: 065
  6. ETOPOSIDE. [Suspect]
     Active Substance: ETOPOSIDE
     Indication: ACUTE LEUKAEMIA
     Dosage: 100MG/M2 DAY 1 TO DAY 5
     Route: 065
  7. DEXAMETHASONE. [Suspect]
     Active Substance: DEXAMETHASONE
     Indication: ACUTE LEUKAEMIA
     Dosage: 6 MG/M2 DAILY; AS A PART OF INTERFANT?06 PROTOCOL
     Route: 065
  8. VINCRISTINE [Suspect]
     Active Substance: VINCRISTINE
     Indication: ACUTE LEUKAEMIA
     Dosage: AS A PART OF INTERFANT?06 PROTOCOL; VINCRISTINE IV PUSH 1.5 MG/M2/DOSE
     Route: 042
  9. L?ASPARAGINASE [Suspect]
     Active Substance: ASPARAGINASE
     Indication: ACUTE LEUKAEMIA
     Dosage: AS A PART OF INTERFANT?06 PROTOCOL; ASPARAGINASE 10000 U/M2/DOSE FOR 1 HOUR
     Route: 042

REACTIONS (2)
  - Streptococcal sepsis [Unknown]
  - Febrile neutropenia [Unknown]
